FAERS Safety Report 7182769-9 (Version None)
Quarter: 2010Q4

REPORT INFORMATION
  Report Type: 
  Country: None (occurrence: None)
  Receive Date: 20101221
  Receipt Date: 20100623
  Transmission Date: 20110411
  Serious: No
  Sender: FDA-Public Use
  Company Number: US-AMGEN-TCS411036

PATIENT

DRUGS (4)
  1. ENBREL [Suspect]
     Indication: PSORIASIS
     Dosage: 50 MG, 2 TIMES/WK
     Route: 058
     Dates: start: 20080101
  2. IBANDRONATE SODIUM [Concomitant]
  3. WARFARIN SODIUM [Concomitant]
  4. NORTRIPTYLINE [Concomitant]

REACTIONS (6)
  - HALO VISION [None]
  - HEADACHE [None]
  - INJECTION SITE ERYTHEMA [None]
  - INJECTION SITE PAPULE [None]
  - INJECTION SITE RASH [None]
  - INJECTION SITE REACTION [None]
